FAERS Safety Report 4314393-7 (Version None)
Quarter: 2004Q1

REPORT INFORMATION
  Report Type: 
  Country: None (occurrence: None)
  Receive Date: 20040309
  Receipt Date: 20040107
  Transmission Date: 20041129
  Serious: Yes (Other)
  Sender: FDA-Public Use
  Company Number: US-GLAXOSMITHKLINE-A0493521A

PATIENT
  Sex: Female
  Weight: 159.1 kg

DRUGS (8)
  1. AVANDIA [Suspect]
     Indication: DIABETES MELLITUS NON-INSULIN-DEPENDENT
     Route: 048
     Dates: start: 19991103
  2. MICRONASE [Concomitant]
     Dosage: 10MG TWICE PER DAY
  3. PRILOSEC [Concomitant]
     Dosage: 20MG PER DAY
  4. ATARAX [Concomitant]
     Dosage: 25MG PER DAY
  5. ZESTRIL [Concomitant]
     Dosage: 10MG PER DAY
  6. DESYREL [Concomitant]
     Dosage: 100MG AT NIGHT
  7. GLUCOPHAGE [Concomitant]
     Indication: DIABETES MELLITUS NON-INSULIN-DEPENDENT
     Dosage: 500MG THREE TIMES PER DAY
  8. HYDROCHLOROTHIAZIDE [Concomitant]
     Dosage: 50MG PER DAY

REACTIONS (21)
  - ACUTE PULMONARY OEDEMA [None]
  - ANAEMIA [None]
  - ARTERIOVENOUS MALFORMATION [None]
  - BRONCHITIS [None]
  - CARDIAC FAILURE CONGESTIVE [None]
  - CARDIOMEGALY [None]
  - CELLULITIS [None]
  - DIASTOLIC DYSFUNCTION [None]
  - DYSPNOEA EXERTIONAL [None]
  - GASTROINTESTINAL DISORDER [None]
  - HAEMODIALYSIS [None]
  - HAEMOGLOBIN DECREASED [None]
  - HAEMORRHAGE [None]
  - HEART INJURY [None]
  - HYPOTENSION [None]
  - HYPOXIA [None]
  - PANNICULITIS [None]
  - PNEUMONIA [None]
  - RENAL FAILURE ACUTE [None]
  - RENAL TUBULAR NECROSIS [None]
  - SLEEP APNOEA SYNDROME [None]
